FAERS Safety Report 4915612-6 (Version None)
Quarter: 2006Q1

REPORT INFORMATION
  Report Type: 
  Country: None (occurrence: None)
  Receive Date: 20060217
  Receipt Date: 20060208
  Transmission Date: 20060701
  Serious: Yes (Hospitalization)
  Sender: FDA-Public Use
  Company Number: US-JNJFOC-20060201895

PATIENT
  Sex: Female
  Weight: 86.18 kg

DRUGS (9)
  1. REMICADE [Suspect]
     Route: 042
     Dates: start: 20040701
  2. REMICADE [Suspect]
     Indication: RHEUMATOID ARTHRITIS
     Route: 042
     Dates: start: 20040701
  3. HYZAAR [Concomitant]
  4. HYZAAR [Concomitant]
     Indication: BLOOD PRESSURE
  5. LOVOXIL [Concomitant]
     Indication: THYROID DISORDER
  6. SANDOSTATIN [Concomitant]
     Indication: CARCINOID SYNDROME
     Route: 050
  7. METHOTREXATE [Concomitant]
     Indication: RHEUMATOID ARTHRITIS
  8. PLAQUINOL TAB [Concomitant]
  9. LEUCOVORIN [Concomitant]

REACTIONS (2)
  - ANAEMIA [None]
  - CARCINOID SYNDROME [None]
